FAERS Safety Report 8596920-7 (Version None)
Quarter: 2012Q3

REPORT INFORMATION
  Report Type: 
  Country: None (occurrence: None)
  Receive Date: 20120815
  Receipt Date: 20120711
  Transmission Date: 20120928
  Serious: Yes (Other)
  Sender: FDA-Public Use
  Company Number: US-ABBOTT-12P-163-0962530-00

PATIENT
  Age: 30 Year
  Sex: Female

DRUGS (19)
  1. VALPROATE SODIUM [Suspect]
     Indication: CONVULSION
  2. TOPIRAMATE [Suspect]
     Indication: CONVULSION
     Dosage: MAX DOSE 400 MG DAILY
  3. LEVETIRACETAM [Suspect]
     Indication: CONVULSION
     Dosage: MAX 2500 MG TWICE DAILY
  4. MAGNESIUM [Concomitant]
     Indication: CONVULSION
  5. KETAMINE HCL [Concomitant]
     Indication: CONVULSION
  6. PHENOBARBITAL TAB [Suspect]
     Indication: CONVULSION
  7. VANCOMYCIN [Concomitant]
     Indication: PRODUCT USED FOR UNKNOWN INDICATION
  8. PENTOBARBITAL CAP [Suspect]
     Indication: CONVULSION
     Dosage: 4-5 MG/KG/HR
  9. ACYCLOVIR [Concomitant]
     Indication: PRODUCT USED FOR UNKNOWN INDICATION
  10. MIDAZOLAM [Suspect]
     Indication: PRODUCT USED FOR UNKNOWN INDICATION
     Dosage: CONTINUOUS DRIP
  11. IMMUNE GLOBULIN NOS [Suspect]
     Indication: CONVULSION
     Dosage: 0.4 MG/KG/DAY
  12. ACETAZOLAMIDE [Suspect]
     Indication: CONVULSION
     Dosage: MAX 500 MG TWICE DAILY
  13. CORTICOTROPIN [Suspect]
     Indication: CONVULSION
  14. PROPOFOL [Suspect]
     Indication: PRODUCT USED FOR UNKNOWN INDICATION
     Dosage: DRIP
  15. FOSPHENYTOIN [Suspect]
     Indication: PRODUCT USED FOR UNKNOWN INDICATION
  16. OXCARBAZEPINE [Suspect]
     Indication: CONVULSION
     Dosage: MAX 1200 MG TWICE DAILY
  17. CEFTRIAXONE [Concomitant]
     Indication: PRODUCT USED FOR UNKNOWN INDICATION
  18. BENZODIAZEPINE RELATED DRUGS [Concomitant]
     Indication: PRODUCT USED FOR UNKNOWN INDICATION
  19. NEURONTIN [Suspect]
     Indication: CONVULSION
     Dosage: MAX 1200 MG THREE TIMES DAILY

REACTIONS (4)
  - DRUG EFFECT DECREASED [None]
  - STATUS EPILEPTICUS [None]
  - RASH [None]
  - THROMBOCYTOPENIA [None]
